FAERS Safety Report 25746542 (Version 1)
Quarter: 2025Q3

REPORT INFORMATION
  Report Type: Spontaneous
  Country: US (occurrence: US)
  Receive Date: 20250901
  Receipt Date: 20250901
  Transmission Date: 20251021
  Serious: No
  Sender: pharmaAND
  Company Number: US-Pharmaand-2025000621

PATIENT
  Age: 70 Year
  Sex: Female

DRUGS (9)
  1. PEGASYS [Suspect]
     Active Substance: PEGINTERFERON ALFA-2A
     Indication: Cutaneous T-cell lymphoma
     Dosage: 0.4 ML (72 MCG)
     Route: 058
  2. BEXAROTENE [Suspect]
     Active Substance: BEXAROTENE
     Indication: Cutaneous T-cell lymphoma
  3. AMLODIPINE [Concomitant]
     Active Substance: AMLODIPINE BESYLATE
  4. BENADRYL [Concomitant]
     Active Substance: DIPHENHYDRAMINE HYDROCHLORIDE
  5. BIOTIN [Concomitant]
     Active Substance: BIOTIN
  6. METOPROLOL [Concomitant]
     Active Substance: METOPROLOL
  7. VITAMIN D [Concomitant]
     Active Substance: VITAMIN D NOS
  8. MENAQUINONE 6 [Concomitant]
     Active Substance: MENAQUINONE 6
  9. ZETIA [Concomitant]
     Active Substance: EZETIMIBE

REACTIONS (4)
  - White blood cell count decreased [Recovered/Resolved]
  - Neutrophil count decreased [Recovered/Resolved]
  - Off label use [Recovered/Resolved]
  - Cutaneous T-cell lymphoma [Recovered/Resolved]

NARRATIVE: CASE EVENT DATE: 20250317
